FAERS Safety Report 7720197-5 (Version None)
Quarter: 2011Q3

REPORT INFORMATION
  Report Type: 
  Country: None (occurrence: None)
  Receive Date: 20110831
  Receipt Date: 20110817
  Transmission Date: 20111222
  Serious: Yes (Congenital Anomaly)
  Sender: FDA-Public Use
  Company Number: GB-UCBSA-037644

PATIENT

DRUGS (3)
  1. LEVETIRACETAM [Suspect]
     Route: 064
  2. LAMOTRIGINE [Suspect]
     Route: 064
  3. VALPROATE SODIUM [Suspect]
     Route: 064

REACTIONS (4)
  - PATENT DUCTUS ARTERIOSUS [None]
  - ATRIAL SEPTAL DEFECT [None]
  - MATERNAL EXPOSURE DURING PREGNANCY [None]
  - DYSMORPHISM [None]
